FAERS Safety Report 19845393 (Version 1)
Quarter: 2021Q3

REPORT INFORMATION
  Report Type: Spontaneous
  Country: DE (occurrence: DE)
  Receive Date: 20210917
  Receipt Date: 20210917
  Transmission Date: 20211014
  Serious: Yes (Hospitalization)
  Sender: FDA-Public Use
  Company Number: DE-MICRO LABS LIMITED-ML2021-02247

PATIENT
  Age: 83 Year
  Sex: Male

DRUGS (9)
  1. BENSERAZID/LEVODOPA 25/100 MG [Suspect]
     Active Substance: BENSERAZIDE\LEVODOPA
     Route: 048
  2. ENTACAPON [Suspect]
     Active Substance: ENTACAPONE
     Route: 048
  3. BISOPROLOL. [Concomitant]
     Active Substance: BISOPROLOL FUMARATE
     Route: 048
  4. TAMSULOSIN [Concomitant]
     Active Substance: TAMSULOSIN
     Route: 048
  5. RASAGILINE. [Suspect]
     Active Substance: RASAGILINE
     Route: 048
  6. BROMAZEPAM [Concomitant]
     Active Substance: BROMAZEPAM
     Route: 048
  7. CANDESARTAN. [Concomitant]
     Active Substance: CANDESARTAN
     Route: 048
  8. KALIUM/MAGNESIUM 117.3|36.5 MG [Concomitant]
     Route: 048
  9. AMANTADINE. [Concomitant]
     Active Substance: AMANTADINE HYDROCHLORIDE
     Route: 048

REACTIONS (3)
  - Dysuria [Recovering/Resolving]
  - Diarrhoea [Recovering/Resolving]
  - Nausea [Recovering/Resolving]
